FAERS Safety Report 5479143-X (Version None)
Quarter: 2007Q4

REPORT INFORMATION
  Report Type: 
  Country: None (occurrence: None)
  Receive Date: 20071008
  Receipt Date: 20071004
  Transmission Date: 20080405
  Serious: Yes (Death)
  Sender: FDA-Public Use
  Company Number: PHFR2007GB02897

PATIENT
  Age: 42 Year
  Sex: Female
  Weight: 127.3 kg

DRUGS (4)
  1. CLOZAPINE [Suspect]
     Indication: SCHIZOPHRENIA
     Route: 048
     Dates: end: 20070818
  2. ACETYLSALICYLIC ACID [Concomitant]
     Indication: DIABETES MELLITUS
     Dosage: 75 MG, QD
     Route: 048
     Dates: start: 20070306, end: 20070818
  3. FERROUS SULFATE TAB [Concomitant]
     Indication: IRON DEFICIENCY
     Dosage: 200 MG, TID
     Route: 048
     Dates: start: 20070611, end: 20070818
  4. METFORMIN HCL [Concomitant]
     Indication: DIABETES MELLITUS
     Dosage: 500 MG, BID
     Route: 048
     Dates: start: 20070302, end: 20070818

REACTIONS (3)
  - ARRHYTHMIA [None]
  - MYOCARDIAL FIBROSIS [None]
  - SUDDEN DEATH [None]
